FAERS Safety Report 6554948-2 (Version None)
Quarter: 2010Q1

REPORT INFORMATION
  Report Type: 
  Country: None (occurrence: None)
  Receive Date: 20100126
  Receipt Date: 20100112
  Transmission Date: 20100710
  Serious: Yes (Other)
  Sender: FDA-Public Use
  Company Number: 1-21293393

PATIENT
  Age: 60 Year
  Sex: Male

DRUGS (4)
  1. METRONIDAZOLE [Suspect]
     Dosage: 1.5 GRAMS PER DAY, ORAL
     Route: 048
  2. SPIRONOLACTONE [Concomitant]
  3. LACTULOSE [Concomitant]
  4. VITAMIN K TAB [Concomitant]

REACTIONS (5)
  - CONDITION AGGRAVATED [None]
  - DRUG TOXICITY [None]
  - DYSARTHRIA [None]
  - HEPATIC ENCEPHALOPATHY [None]
  - MYOCLONUS [None]
